FAERS Safety Report 8606357-X (Version None)
Quarter: 2012Q3

REPORT INFORMATION
  Report Type: 
  Country: None (occurrence: None)
  Receive Date: 20120820
  Receipt Date: 20120817
  Transmission Date: 20120928
  Serious: Yes (Hospitalization)
  Sender: FDA-Public Use
  Company Number: DE-ROCHE-1103539

PATIENT
  Sex: Female
  Weight: 70 kg

DRUGS (3)
  1. PEGASYS [Suspect]
     Indication: HEPATITIS C
     Route: 058
     Dates: start: 20120622
  2. COPEGUS [Suspect]
     Indication: HEPATITIS C
     Route: 065
  3. BOCEPREVIR [Suspect]
     Indication: HEPATITIS C
     Route: 065

REACTIONS (1)
  - SOMNOLENCE [None]
